FAERS Safety Report 8580263-1 (Version None)
Quarter: 2012Q3

REPORT INFORMATION
  Report Type: 
  Country: None (occurrence: None)
  Receive Date: 20120808
  Receipt Date: 20120723
  Transmission Date: 20120928
  Serious: Yes (Hospitalization, Other)
  Sender: FDA-Public Use
  Company Number: CHPA2012US016572

PATIENT
  Age: 52 Year
  Sex: Female

DRUGS (3)
  1. FEMARA [Concomitant]
     Dosage: UNK, UNK
  2. METRONIDAZOLE [Concomitant]
     Dosage: 500 MG, UNK
  3. MAALOX ANTACID/ANTIGAS RS LIQ COOL MINT [Suspect]
     Indication: ABDOMINAL DISCOMFORT
     Dosage: 3 TSP, QID
     Route: 048

REACTIONS (26)
  - BREAST CANCER [None]
  - JOINT INJURY [None]
  - TEMPOROMANDIBULAR JOINT SYNDROME [None]
  - ARTHRALGIA [None]
  - OVERDOSE [None]
  - ARTHRITIS [None]
  - INCORRECT DRUG ADMINISTRATION DURATION [None]
  - ABDOMINAL PAIN UPPER [None]
  - SYNOVIAL CYST [None]
  - EXOSTOSIS [None]
  - EXPIRED DRUG ADMINISTERED [None]
  - SPINAL DISORDER [None]
  - MUSCULOSKELETAL PAIN [None]
  - MEMORY IMPAIRMENT [None]
  - RECTAL FISSURE [None]
  - CARPAL TUNNEL SYNDROME [None]
  - ARTHROPATHY [None]
  - RETCHING [None]
  - DIARRHOEA [None]
  - FIBROMYALGIA [None]
  - MUSCULAR WEAKNESS [None]
  - BALANCE DISORDER [None]
  - DRUG INEFFECTIVE [None]
  - BACK PAIN [None]
  - ATTENTION DEFICIT/HYPERACTIVITY DISORDER [None]
  - PHOTOPSIA [None]
